FAERS Safety Report 10009400 (Version 2)
Quarter: 2014Q1

REPORT INFORMATION
  Report Type: Spontaneous
  Country: US (occurrence: US)
  Receive Date: 20140313
  Receipt Date: 20140313
  Transmission Date: 20141002
  Serious: Yes (Other)
  Sender: FDA-Public Use
  Company Number: US-INCYTE CORPORATION-2012IN001061

PATIENT
  Age: 87 Year
  Sex: Male
  Weight: 75.74 kg

DRUGS (14)
  1. JAKAFI [Suspect]
     Indication: MYELOFIBROSIS
     Dosage: 10 MG, BID
     Route: 048
     Dates: start: 20120312
  2. CYMBALTA [Concomitant]
     Dosage: 60 MG, QD
     Dates: start: 201012
  3. TRAMADOL [Concomitant]
     Dosage: 50 MG, BID
     Dates: start: 201107
  4. TRAMADOL [Concomitant]
     Dosage: 100 MG, BID INCR TO Q6H
     Dates: start: 201107
  5. ALLOPURINOL [Concomitant]
     Dosage: 100 MG, QD
  6. VESICARE [Concomitant]
     Dosage: 5 MG, QD
  7. NEXIUM [Concomitant]
     Dosage: 40 MG, QD
     Dates: start: 201012
  8. TAMSULOSIN [Concomitant]
     Dosage: 5 MG, QD
  9. PLAVIX [Concomitant]
     Dosage: 75 MG, QOD
     Dates: start: 201012
  10. METOCLOPRAMIDE [Concomitant]
     Dosage: 5 MG, QD
     Dates: start: 201012
  11. OMEPRAZOLE [Concomitant]
     Dosage: 20 MG, QD
     Dates: start: 201012
  12. MELOXICAM [Concomitant]
     Dosage: 15 MG, QD
     Dates: start: 201012
  13. HYDROCODONE [Concomitant]
     Dosage: 5/500 MG Q6H, PRN
     Dates: start: 200607
  14. VITAMIN B12 [Concomitant]
     Dosage: 1000 MCG, QD
     Dates: start: 201110

REACTIONS (2)
  - Haemoglobin decreased [Recovered/Resolved with Sequelae]
  - Haematocrit decreased [Unknown]
